FAERS Safety Report 9773308 (Version 1)
Quarter: 2013Q4

REPORT INFORMATION
  Report Type: Spontaneous
  Country: US (occurrence: US)
  Receive Date: 20131219
  Receipt Date: 20131219
  Transmission Date: 20140711
  Serious: Yes (Other)
  Sender: FDA-Public Use
  Company Number: US-JNJFOC-20131209613

PATIENT
  Sex: Female

DRUGS (1)
  1. INVOKANA [Suspect]
     Indication: TYPE 2 DIABETES MELLITUS
     Dosage: TOTAL DURATION: 5-6 DAYS
     Route: 048

REACTIONS (5)
  - Vaginal cyst [Unknown]
  - Vulvovaginal pruritus [Recovered/Resolved]
  - Erythema [Recovered/Resolved]
  - Skin discolouration [Recovered/Resolved]
  - Skin exfoliation [Unknown]
